FAERS Safety Report 17684775 (Version 3)
Quarter: 2020Q2

REPORT INFORMATION
  Report Type: Spontaneous
  Country: IE (occurrence: IE)
  Receive Date: 20200420
  Receipt Date: 20200519
  Transmission Date: 20200714
  Serious: Yes (Other)
  Sender: FDA-Public Use
  Company Number: IE-TEVA-2020-IE-1223586

PATIENT
  Sex: Male

DRUGS (11)
  1. LITHIUM CARBONATE. [Concomitant]
     Active Substance: LITHIUM CARBONATE
     Indication: BIPOLAR DISORDER
     Dosage: 100 MG TAKEN ORALLY AT NIGHT ONGOING DOSE TAPERING - ORIGINAL DOSE WAS 800MG OF LITHIUM PER NIGHT, 1
     Route: 048
     Dates: end: 201904
  2. AZITHROMYCIN TEVA [Interacting]
     Active Substance: AZITHROMYCIN
     Indication: URINARY TRACT INFECTION
  3. PENICILLIN (BENZYLPENICILLIN SODIUM) [Suspect]
     Active Substance: PENICILLIN G SODIUM
     Indication: TOOTH INFECTION
     Dosage: PENICILLIN (GENERIC)
     Route: 048
     Dates: start: 202003
  4. GERMENTIN 250MG/125MG FILM-COATED TABLETS [Concomitant]
     Dosage: 3 TABLETS 3 TIMES A DAY FOR 7 DAYS
     Route: 048
  5. PRO-VEN [DIETARY SUPPLEMENT\PROBIOTICS] [Suspect]
     Active Substance: DIETARY SUPPLEMENT\PROBIOTICS
     Dosage: 2 SACHETS
     Route: 048
     Dates: start: 201902
  6. TURMERIC [Concomitant]
     Active Substance: HERBALS\TURMERIC
     Dosage: ADDITIONAL IFNORMATION : SUBTANCE NAME : CURCUMA LONGA ,
     Route: 048
     Dates: start: 2018, end: 2019
  7. COD LIVER OIL (G) [Concomitant]
     Dosage: DAILY
     Route: 048
  8. AZITHROMYCIN TEVA [Suspect]
     Active Substance: AZITHROMYCIN
     Indication: GROIN PAIN
     Dosage: PRESCRIBED DOSE = TWO 250 MG TABLETS DAILY FOR THREE DAYS TAKEN DOSE = 3 TABLETS TAKEN BEFORE DISCON
     Route: 048
     Dates: start: 20190223, end: 20190224
  9. MAG365 EXOTIC LEMON FLAVOUR - IONIC MAGNESIUM CITRATE [Suspect]
     Active Substance: MAGNESIUM CITRATE
     Dosage: 1-2 TEASPOONS OF IT DAILY, MAG365 EXOTIC LEMON FLAVOUR - IONIC MAGNESIUM CITRATE
     Route: 048
  10. PROBIOTICS (GENERIC) IRELAND [Concomitant]
     Dates: start: 2019
  11. PROBIOTICS (GENERIC) IRELAND [Concomitant]
     Dosage: 2 SACHETS
     Dates: start: 201902

REACTIONS (9)
  - Irritable bowel syndrome [Not Recovered/Not Resolved]
  - Condition aggravated [Unknown]
  - Anxiety [Recovered/Resolved]
  - Gastrointestinal disorder [Not Recovered/Not Resolved]
  - Frustration tolerance decreased [Unknown]
  - Gastrointestinal tract irritation [Not Recovered/Not Resolved]
  - Gastrointestinal pain [Not Recovered/Not Resolved]
  - Depressed mood [Unknown]
  - Drug interaction [Unknown]

NARRATIVE: CASE EVENT DATE: 201902
